FAERS Safety Report 18714218 (Version 1)
Quarter: 2021Q1

REPORT INFORMATION
  Report Type: Report from Study
  Country: None (occurrence: CO)
  Receive Date: 20210108
  Receipt Date: 20210108
  Transmission Date: 20210419
  Serious: Yes (Hospitalization, Other)
  Sender: FDA-Public Use
  Company Number: CO-ABBVIE-21K-036-3719599-00

PATIENT
  Age: 64 Year
  Sex: Female

DRUGS (2)
  1. ZEMPLAR [Suspect]
     Active Substance: PARICALCITOL
     Indication: CHRONIC KIDNEY DISEASE
  2. ZEMPLAR [Suspect]
     Active Substance: PARICALCITOL
     Indication: HYPERPARATHYROIDISM SECONDARY
     Dosage: POSTDIALYSIS
     Route: 042
     Dates: start: 20150722, end: 20201130

REACTIONS (5)
  - Loss of consciousness [Recovering/Resolving]
  - Haemodialysis [Unknown]
  - Procedural hypertension [Recovering/Resolving]
  - Haemodialysis complication [Unknown]
  - Vascular access site inflammation [Recovering/Resolving]

NARRATIVE: CASE EVENT DATE: 202012
